FAERS Safety Report 6463903-2 (Version None)
Quarter: 2009Q4

REPORT INFORMATION
  Report Type: 
  Country: None (occurrence: None)
  Receive Date: 20091201
  Receipt Date: 20091125
  Transmission Date: 20100525
  Serious: Yes (Hospitalization)
  Sender: FDA-Public Use
  Company Number: FR-ROCHE-667070

PATIENT
  Age: 64 Year
  Sex: Male

DRUGS (3)
  1. XELODA [Suspect]
     Indication: METASTATIC NEOPLASM
     Dosage: DOSE: 2 G/M2
     Route: 048
     Dates: start: 20090701, end: 20091001
  2. CISPLATIN [Concomitant]
  3. FLUOROURACIL [Concomitant]

REACTIONS (2)
  - OPTIC NERVE DISORDER [None]
  - VISUAL IMPAIRMENT [None]
